FAERS Safety Report 13162352 (Version 1)
Quarter: 2017Q1

REPORT INFORMATION
  Report Type: Report from Study
  Country: CA (occurrence: CA)
  Receive Date: 20170130
  Receipt Date: 20170130
  Transmission Date: 20170428
  Serious: Yes (Other)
  Sender: FDA-Public Use
  Company Number: PHHY2016CA082621

PATIENT
  Sex: Male

DRUGS (2)
  1. GILENYA [Suspect]
     Active Substance: FINGOLIMOD HYDROCHLORIDE
     Indication: PRODUCT USED FOR UNKNOWN INDICATION
     Dosage: 1 DF, QD
     Route: 048
     Dates: start: 20160216
  2. GILENYA [Suspect]
     Active Substance: FINGOLIMOD HYDROCHLORIDE
     Dosage: 1 DF, QOD (DAY YES, DAY NO)
     Route: 048

REACTIONS (5)
  - Lymphocyte count decreased [Unknown]
  - Cognitive disorder [Unknown]
  - Neutropenia [Unknown]
  - Hepatic enzyme increased [Unknown]
  - Prescribed underdose [Unknown]
